FAERS Safety Report 6444750-4 (Version None)
Quarter: 2009Q4

REPORT INFORMATION
  Report Type: 
  Country: None (occurrence: None)
  Receive Date: 20091116
  Receipt Date: 20091116
  Transmission Date: 20100525
  Serious: Yes (Other)
  Sender: FDA-Public Use
  Company Number: None

PATIENT
  Sex: Female
  Weight: 102.9665 kg

DRUGS (1)
  1. CYMBALTA 20 MG LILLY 20 MG 2 QD P.O. [Suspect]
     Indication: DEPRESSION
     Dosage: 20 MG TWICE QD PO
     Route: 048
     Dates: start: 20090908, end: 20091104

REACTIONS (2)
  - DEPRESSION [None]
  - SUICIDAL IDEATION [None]
